FAERS Safety Report 9084818 (Version 2)
Quarter: 2013Q1

REPORT INFORMATION
  Report Type: Spontaneous
  Country: US (occurrence: US)
  Receive Date: 20130131
  Receipt Date: 20130306
  Transmission Date: 20140127
  Serious: Yes (Hospitalization)
  Sender: FDA-Public Use
  Company Number: US-SANOFI-AVENTIS-2013SA007801

PATIENT
  Age: 52 Year
  Sex: Female
  Weight: 68.18 kg

DRUGS (10)
  1. AUBAGIO [Suspect]
     Indication: MULTIPLE SCLEROSIS
     Route: 048
     Dates: start: 20130108
  2. LYRICA [Concomitant]
  3. CELEBREX [Concomitant]
  4. OXYCODONE [Concomitant]
     Dosage: 5 325
  5. VENLAFAXINE [Concomitant]
     Dosage: 150
  6. BUPROPION [Concomitant]
     Dosage: 300
  7. TIZANIDINE [Concomitant]
  8. LANSOPRAZOLE [Concomitant]
  9. ALL OTHER THERAPEUTIC PRODUCTS [Concomitant]
  10. CYMBALTA [Concomitant]

REACTIONS (3)
  - Cardiac disorder [Unknown]
  - Urinary tract infection [Unknown]
  - Chest discomfort [Unknown]
